FAERS Safety Report 25251438 (Version 1)
Quarter: 2025Q2

REPORT INFORMATION
  Report Type: Other
  Country: US (occurrence: US)
  Receive Date: 20250429
  Receipt Date: 20250429
  Transmission Date: 20250716
  Serious: No
  Sender: TRAVERE THERAPEUTICS
  Company Number: US-TRAVERE-2025TVT00385

PATIENT
  Age: 47 Year
  Sex: Male
  Weight: 117.03 kg

DRUGS (2)
  1. FILSPARI [Suspect]
     Active Substance: SPARSENTAN
     Indication: IgA nephropathy
     Dosage: 1 TABLET, ONCE A DAILY FOR DAYS 1-14
     Route: 048
     Dates: start: 202501
  2. FILSPARI [Suspect]
     Active Substance: SPARSENTAN
     Indication: Haematuria
     Dosage: 2 TABLETS, ONCE A DAILY ON DAYS 15-30
     Route: 048

REACTIONS (3)
  - Weight increased [Unknown]
  - Peripheral swelling [Unknown]
  - Decreased appetite [Unknown]

NARRATIVE: CASE EVENT DATE: 20250101
